FAERS Safety Report 9894971 (Version 1)
Quarter: 2014Q1

REPORT INFORMATION
  Report Type: Spontaneous
  Country: US (occurrence: US)
  Receive Date: 20140213
  Receipt Date: 20140213
  Transmission Date: 20141002
  Serious: No
  Sender: FDA-Public Use
  Company Number: US-BRISTOL-MYERS SQUIBB COMPANY-17258427

PATIENT
  Age: 53 Year
  Sex: Female
  Weight: 95.24 kg

DRUGS (8)
  1. ABATACEPT SUBQ INJECTION 125MG/ML [Suspect]
     Indication: RHEUMATOID ARTHRITIS
     Route: 058
  2. NEXIUM [Concomitant]
  3. PREMPRO [Concomitant]
  4. AZITHROMYCIN [Concomitant]
  5. CITALOPRAM [Concomitant]
  6. CELEBREX [Concomitant]
  7. FOLIC ACID [Concomitant]
  8. PREDNISONE [Concomitant]

REACTIONS (2)
  - Oropharyngeal pain [Unknown]
  - Ear pain [Unknown]
